FAERS Safety Report 4342358-8 (Version None)
Quarter: 2004Q2

REPORT INFORMATION
  Report Type: 
  Country: None (occurrence: None)
  Receive Date: 20040416
  Receipt Date: 20040406
  Transmission Date: 20050107
  Serious: Yes (Other)
  Sender: FDA-Public Use
  Company Number: 2004011277

PATIENT
  Sex: 0

DRUGS (1)
  1. RELPAX [Suspect]
     Indication: ILL-DEFINED DISORDER

REACTIONS (3)
  - COLITIS [None]
  - INTESTINAL ISCHAEMIA [None]
  - MEDICATION ERROR [None]
